FAERS Safety Report 9326528 (Version 1)
Quarter: 2013Q2

REPORT INFORMATION
  Report Type: Spontaneous
  Country: US (occurrence: None)
  Receive Date: 20130603
  Receipt Date: 20130603
  Transmission Date: 20140414
  Serious: Yes (Other)
  Sender: FDA-Public Use
  Company Number: None

PATIENT
  Age: 6 Year
  Sex: Female
  Weight: 22.68 kg

DRUGS (1)
  1. CLOTRIMAZOLE/BETAMETHASONE DIPROPIONATE [Suspect]
     Indication: TINEA INFECTION
     Route: 061

REACTIONS (2)
  - Rash erythematous [None]
  - Pruritus [None]
